FAERS Safety Report 4280679-8 (Version None)
Quarter: 2004Q1

REPORT INFORMATION
  Report Type: 
  Country: None (occurrence: None)
  Receive Date: 20040127
  Receipt Date: 20040115
  Transmission Date: 20041129
  Serious: Yes (Hospitalization)
  Sender: FDA-Public Use
  Company Number: 04P-163-0247205-00

PATIENT
  Age: 63 Year
  Sex: Female
  Weight: 88.4514 kg

DRUGS (4)
  1. HUMIRA [Suspect]
     Indication: RHEUMATOID ARTHRITIS
     Dosage: 40 MG, 1 IN 2 WK, SUBCUTANEOUS
     Route: 059
     Dates: start: 20030701, end: 20031208
  2. SALBUTAMOL [Concomitant]
  3. OXYGEN [Concomitant]
  4. CALCIUM CARBONATE [Concomitant]

REACTIONS (6)
  - BACK INJURY [None]
  - BACK PAIN [None]
  - CEREBROVASCULAR ACCIDENT [None]
  - CONVULSION [None]
  - FALL [None]
  - SINUSITIS [None]
